FAERS Safety Report 20434274 (Version 1)
Quarter: 2022Q1

REPORT INFORMATION
  Report Type: Spontaneous
  Country: DE (occurrence: DE)
  Receive Date: 20220206
  Receipt Date: 20220206
  Transmission Date: 20220423
  Serious: Yes (Other)
  Sender: FDA-Public Use
  Company Number: DE-NOVARTISPH-NVSC2022DE021506

PATIENT
  Age: 50 Year
  Sex: Female
  Weight: 84 kg

DRUGS (1)
  1. ESTRADIOL [Suspect]
     Active Substance: ESTRADIOL
     Indication: Product used for unknown indication
     Dosage: 100 MG, QD IN THE EVENING
     Route: 065
     Dates: start: 202201

REACTIONS (4)
  - Postmenopausal haemorrhage [Unknown]
  - Head discomfort [Unknown]
  - Morning sickness [Unknown]
  - Dizziness [Unknown]
